FAERS Safety Report 16056873 (Version 1)
Quarter: 2019Q2

REPORT INFORMATION
  Report Type: Spontaneous
  Country: US (occurrence: US)
  Receive Date: 20190311
  Receipt Date: 20190311
  Transmission Date: 20190711
  Serious: Yes (Other)
  Sender: FDA-Public Use
  Company Number: None

PATIENT
  Age: 58 Year
  Sex: Female
  Weight: 111.6 kg

DRUGS (14)
  1. KLOR-CON( POTASSIUM CHLORIDE) [Concomitant]
  2. VITAMIN C [Concomitant]
     Active Substance: ASCORBIC ACID
  3. VITAMIN D NOS [Concomitant]
     Active Substance: VITAMIN D NOS
  4. METFORMIN [Concomitant]
     Active Substance: METFORMIN HYDROCHLORIDE
  5. WELLBUTRIN [Concomitant]
     Active Substance: BUPROPION HYDROCHLORIDE
  6. LIPITOR [Concomitant]
     Active Substance: ATORVASTATIN CALCIUM
  7. CALCIUM [Concomitant]
     Active Substance: CALCIUM
  8. ST JOSEPH CHILDREN^S ASPIRIN [Concomitant]
  9. ACTOS [Suspect]
     Active Substance: PIOGLITAZONE HYDROCHLORIDE
     Indication: DIABETES MELLITUS
     Dosage: ?          QUANTITY:1 TABLET(S);?
     Route: 048
     Dates: start: 20190208, end: 20190209
  10. LISONPRIL [Concomitant]
     Active Substance: LISINOPRIL
  11. HUMOLOG INSULON [Concomitant]
  12. LASIX [Concomitant]
     Active Substance: FUROSEMIDE
  13. FISH OIL [Concomitant]
     Active Substance: FISH OIL
  14. MAGNESIUM [Concomitant]
     Active Substance: MAGNESIUM

REACTIONS (2)
  - Vomiting [None]
  - Insomnia [None]

NARRATIVE: CASE EVENT DATE: 20190208
